FAERS Safety Report 4666817-3 (Version None)
Quarter: 2005Q2

REPORT INFORMATION
  Report Type: 
  Country: None (occurrence: None)
  Receive Date: 20050518
  Receipt Date: 20041111
  Transmission Date: 20051028
  Serious: Yes (Hospitalization)
  Sender: FDA-Public Use
  Company Number: 2005018190

PATIENT
  Age: 25 Year
  Sex: Female
  Weight: 65.7716 kg

DRUGS (2)
  1. DEPO-PROVERA [Suspect]
     Indication: ILL-DEFINED DISORDER
     Dosage: 150MG (150MG,1 STAT INJ EVERY 3 MONTHS IM,   150 MG MOST RECENT INJ IM
     Route: 030
     Dates: start: 20040707, end: 20040707
  2. DEPO-PROVERA [Suspect]
     Indication: ILL-DEFINED DISORDER
     Dosage: 150MG (150MG,1 STAT INJ EVERY 3 MONTHS IM,   150 MG MOST RECENT INJ IM
     Route: 030
     Dates: start: 20041001, end: 20041001

REACTIONS (1)
  - MENOMETRORRHAGIA [None]
